FAERS Safety Report 4866272-4 (Version None)
Quarter: 2005Q4

REPORT INFORMATION
  Report Type: 
  Country: None (occurrence: None)
  Receive Date: 20051221
  Receipt Date: 20051212
  Transmission Date: 20060501
  Serious: Yes (Other)
  Sender: FDA-Public Use
  Company Number: 2005168478

PATIENT
  Age: 75 Year
  Sex: Male
  Weight: 84.8226 kg

DRUGS (6)
  1. LIPITOR [Suspect]
     Indication: BLOOD CHOLESTEROL
     Dosage: 10 MG
     Dates: start: 20030101
  2. ALL OTHER THERAPEUTIC PRODUCTS (ALL OTHER THERAPEUITC PRODUCTS) [Suspect]
     Indication: BLOOD CHOLESTEROL
     Dates: start: 20050101
  3. NITRO (GLYCERYL TRINITRATE) [Concomitant]
  4. ACETYLSALICYLIC ACID (ACETULSALICYLIC ACID) [Concomitant]
  5. HALCION [Concomitant]
  6. DARVOCET [Concomitant]

REACTIONS (4)
  - INSOMNIA [None]
  - MYALGIA [None]
  - MYOPATHY [None]
  - VISION BLURRED [None]
